FAERS Safety Report 21570201 (Version 1)
Quarter: 2022Q4

REPORT INFORMATION
  Report Type: Spontaneous
  Country: DE (occurrence: DE)
  Receive Date: 20221109
  Receipt Date: 20221109
  Transmission Date: 20230112
  Serious: Yes (Other)
  Sender: FDA-Public Use
  Company Number: DE-002147023-NVSC2022DE247885

PATIENT
  Age: 53 Year
  Sex: Male

DRUGS (3)
  1. CISPLATIN [Suspect]
     Active Substance: CISPLATIN
     Indication: Anal cancer metastatic
     Dosage: 60 MG/M2 (D1)
     Route: 065
     Dates: start: 201703
  2. CAPECITABINE [Suspect]
     Active Substance: CAPECITABINE
     Indication: Anal cancer metastatic
     Dosage: 2500 MG/M2 (D1-14)
     Route: 065
     Dates: start: 201703
  3. DOCETAXEL [Suspect]
     Active Substance: DOCETAXEL
     Indication: Anal cancer metastatic
     Dosage: 75 MG/M2 (D1)
     Route: 065

REACTIONS (4)
  - Metastases to lymph nodes [Unknown]
  - Anal cancer metastatic [Unknown]
  - Malignant neoplasm progression [Unknown]
  - Product use in unapproved indication [Unknown]

NARRATIVE: CASE EVENT DATE: 20170901
